FAERS Safety Report 24941922 (Version 2)
Quarter: 2025Q3

REPORT INFORMATION
  Report Type: Spontaneous
  Country: IN (occurrence: IN)
  Receive Date: 20250207
  Receipt Date: 20250826
  Transmission Date: 20251021
  Serious: Yes (Life-Threatening, Hospitalization, Other)
  Sender: DR REDDYS
  Company Number: None

PATIENT
  Age: 3 Decade
  Sex: Male

DRUGS (12)
  1. CAPECITABINE [Suspect]
     Active Substance: CAPECITABINE
     Indication: Intestinal adenocarcinoma
  2. CAPECITABINE [Suspect]
     Active Substance: CAPECITABINE
     Indication: Recurrent cancer
  3. CAPECITABINE [Suspect]
     Active Substance: CAPECITABINE
     Indication: Nasal cavity cancer
  4. CAPECITABINE [Suspect]
     Active Substance: CAPECITABINE
     Indication: Nasal sinus cancer
  5. DOCETAXEL [Suspect]
     Active Substance: DOCETAXEL
     Indication: Intestinal adenocarcinoma
  6. DOCETAXEL [Suspect]
     Active Substance: DOCETAXEL
     Indication: Recurrent cancer
  7. DOCETAXEL [Suspect]
     Active Substance: DOCETAXEL
     Indication: Nasal cavity cancer
  8. DOCETAXEL [Suspect]
     Active Substance: DOCETAXEL
     Indication: Nasal sinus cancer
  9. CISPLATIN [Suspect]
     Active Substance: CISPLATIN
     Indication: Intestinal adenocarcinoma
  10. CISPLATIN [Suspect]
     Active Substance: CISPLATIN
     Indication: Recurrent cancer
  11. CISPLATIN [Suspect]
     Active Substance: CISPLATIN
     Indication: Nasal cavity cancer
  12. CISPLATIN [Suspect]
     Active Substance: CISPLATIN
     Indication: Nasal sinus cancer

REACTIONS (6)
  - Febrile neutropenia [Unknown]
  - Nausea [Unknown]
  - Vomiting [Unknown]
  - Drug intolerance [Unknown]
  - Malignant neoplasm progression [Unknown]
  - Drug ineffective for unapproved indication [Unknown]
